FAERS Safety Report 8215289-0 (Version None)
Quarter: 2012Q1

REPORT INFORMATION
  Report Type: 
  Country: None (occurrence: None)
  Receive Date: 20120316
  Receipt Date: 20120201
  Transmission Date: 20120608
  Serious: Yes (Other)
  Sender: FDA-Public Use
  Company Number: CA-PFIZER INC-2012064539

PATIENT
  Weight: 1.86 kg

DRUGS (14)
  1. METOCLOPRAMIDE [Concomitant]
     Dosage: UNK
     Route: 064
  2. INSULIN ASPART [Concomitant]
     Dosage: UNK
     Route: 064
  3. THIAMINE [Concomitant]
     Dosage: 100 MG, UNK
     Route: 064
  4. COSYNTROPIN [Concomitant]
     Dosage: SINGLE DOSE
     Route: 064
  5. ACETYLSALICYLIC ACID [Concomitant]
     Dosage: UNK
     Route: 064
  6. OXAZEPAM [Concomitant]
     Dosage: UNK
     Route: 064
  7. HYDROXYZINE [Concomitant]
     Dosage: 100 MG (25 MG, 1 IN 6 HR)
     Route: 064
  8. ONDANSETRON HCL [Suspect]
     Indication: HYPEREMESIS GRAVIDARUM
     Dosage: UNK
     Route: 064
  9. SUMATRIPTAN [Concomitant]
     Dosage: UNK
     Route: 064
  10. PANTOPRAZOLE [Concomitant]
     Route: 064
  11. DEXTROSE 5% AND SODIUM CHLORIDE 0.45% IN PLASTIC CONTAINER [Concomitant]
     Dosage: UNK
     Route: 064
  12. HYDROMORPHONE [Concomitant]
     Dosage: UNK
     Route: 064
  13. REGULAR INSULIN [Concomitant]
     Dosage: UNK
     Route: 064
  14. DIPHENHYDRAMINE [Concomitant]
     Dosage: 50 MG, 1 IN 6 HR
     Route: 064

REACTIONS (3)
  - FOETAL GROWTH RESTRICTION [None]
  - HYPOGLYCAEMIA NEONATAL [None]
  - MATERNAL EXPOSURE TIMING UNSPECIFIED [None]
